FAERS Safety Report 18734525 (Version 1)
Quarter: 2021Q1

REPORT INFORMATION
  Report Type: Spontaneous
  Country: PT (occurrence: PT)
  Receive Date: 20210113
  Receipt Date: 20210113
  Transmission Date: 20210419
  Serious: Yes (Other)
  Sender: FDA-Public Use
  Company Number: PT-ASTRAZENECA-2020SF51380

PATIENT
  Age: 15128 Day
  Sex: Female
  Weight: 80 kg

DRUGS (3)
  1. VICTAN [Concomitant]
     Active Substance: ETHYL LOFLAZEPATE
     Route: 048
  2. SERTRALINE [Concomitant]
     Active Substance: SERTRALINE HYDROCHLORIDE
     Route: 048
     Dates: start: 2012
  3. SEROQUEL [Suspect]
     Active Substance: QUETIAPINE FUMARATE
     Route: 048
     Dates: start: 2012

REACTIONS (5)
  - Menstrual disorder [Not Recovered/Not Resolved]
  - Toothache [Unknown]
  - Seizure [Recovering/Resolving]
  - Sleep apnoea syndrome [Recovering/Resolving]
  - Tooth abscess [Unknown]

NARRATIVE: CASE EVENT DATE: 20181101
